FAERS Safety Report 17460649 (Version 1)
Quarter: 2020Q1

REPORT INFORMATION
  Report Type: Spontaneous
  Country: US (occurrence: US)
  Receive Date: 20200213
  Receipt Date: 20200213
  Transmission Date: 20200409
  Serious: No
  Sender: FDA-Public Use
  Company Number: None

PATIENT
  Age: 45 Year
  Sex: Male

DRUGS (2)
  1. ADEMPAS [Suspect]
     Active Substance: RIOCIGUAT
     Indication: PULMONARY ARTERIAL HYPERTENSION
     Route: 048
     Dates: start: 20191230, end: 20200213
  2. HICKMAN CATHETER [Suspect]
     Active Substance: DEVICE

REACTIONS (5)
  - Device leakage [None]
  - Device issue [None]
  - Device related infection [None]
  - Oedema [None]
  - Abdominal distension [None]

NARRATIVE: CASE EVENT DATE: 20200201
